FAERS Safety Report 4311588-3 (Version None)
Quarter: 2004Q1

REPORT INFORMATION
  Report Type: 
  Country: None (occurrence: None)
  Receive Date: 20040302
  Receipt Date: 20031114
  Transmission Date: 20041129
  Serious: No
  Sender: FDA-Public Use
  Company Number: 200325778BWH

PATIENT
  Age: 45 Year
  Sex: Male
  Weight: 104.3273 kg

DRUGS (6)
  1. LEVITRA [Suspect]
     Indication: ERECTILE DYSFUNCTION
     Dosage: 10 MG TOTAL DAILY ORAL
     Route: 048
     Dates: start: 20031005
  2. LEVITRA [Suspect]
     Indication: ERECTILE DYSFUNCTION
     Dosage: 10 MG TOTAL DAILY ORAL
     Route: 048
     Dates: start: 20031008
  3. ZESTRIL [Concomitant]
  4. NEXIUM [Concomitant]
  5. VIAGRA [Concomitant]
  6. ENZYTE [Concomitant]

REACTIONS (2)
  - ERUCTATION [None]
  - HICCUPS [None]
